FAERS Safety Report 6480920-7 (Version None)
Quarter: 2009Q4

REPORT INFORMATION
  Report Type: 
  Country: None (occurrence: None)
  Receive Date: 20091208
  Receipt Date: 20091124
  Transmission Date: 20100525
  Serious: Yes (Other)
  Sender: FDA-Public Use
  Company Number: GB-MYLANLABS-2009S1020406

PATIENT
  Age: 61 Year
  Sex: Female
  Weight: 80 kg

DRUGS (8)
  1. DIHYDROCODEINE BITARTRATE INJ [Suspect]
     Indication: PAIN
     Route: 048
  2. BLACK COHOSH /01456801/ [Suspect]
     Indication: HORMONE REPLACEMENT THERAPY
     Dates: start: 20060301, end: 20060308
  3. HUMIRA [Suspect]
     Indication: RHEUMATOID ARTHRITIS
     Dates: start: 20070101, end: 20070201
  4. HUMIRA [Suspect]
     Dates: start: 20060701, end: 20061001
  5. SULINDAC [Suspect]
     Indication: PAIN
     Route: 048
  6. INDAPAMIDE [Concomitant]
     Indication: HYPERTENSION
     Route: 048
  7. PERINDOPRIL [Concomitant]
     Indication: HYPERTENSION
     Route: 048
  8. PREDNISOLONE [Concomitant]
     Indication: PAIN
     Route: 048

REACTIONS (5)
  - LIVER FUNCTION TEST ABNORMAL [None]
  - NAUSEA [None]
  - OROPHARYNGEAL PAIN [None]
  - PRURITUS [None]
  - URINARY TRACT INFECTION [None]
